FAERS Safety Report 14590582 (Version 1)
Quarter: 2018Q1

REPORT INFORMATION
  Report Type: Spontaneous
  Country: US (occurrence: US)
  Receive Date: 20180301
  Receipt Date: 20180301
  Transmission Date: 20180509
  Serious: Yes (Hospitalization)
  Sender: FDA-Public Use
  Company Number: None

PATIENT
  Age: 81 Year
  Sex: Male
  Weight: 74.84 kg

DRUGS (1)
  1. MELPHALAN. [Suspect]
     Active Substance: MELPHALAN

REACTIONS (2)
  - Epistaxis [None]
  - Thrombocytopenia [None]
